FAERS Safety Report 18441886 (Version 1)
Quarter: 2020Q4

REPORT INFORMATION
  Report Type: Spontaneous
  Country: US (occurrence: US)
  Receive Date: 20201029
  Receipt Date: 20201029
  Transmission Date: 20210114
  Serious: No
  Sender: FDA-Public Use
  Company Number: US-NEXGEN PHARMA, INC.-2093359

PATIENT
  Age: 22 Year
  Sex: Female

DRUGS (1)
  1. CHENODAL [Suspect]
     Active Substance: CHENODIOL
     Indication: CHOLESTASIS
     Route: 048
     Dates: start: 20190814

REACTIONS (1)
  - Haematochezia [Recovering/Resolving]
